FAERS Safety Report 11462069 (Version 1)
Quarter: 2015Q3

REPORT INFORMATION
  Report Type: Spontaneous
  Country: US (occurrence: US)
  Receive Date: 20150831
  Receipt Date: 20150831
  Transmission Date: 20151125
  Serious: No
  Sender: FDA-Public Use
  Company Number: US-ELI_LILLY_AND_COMPANY-US201009006782

PATIENT
  Age: 43 Year
  Sex: Female

DRUGS (2)
  1. CYMBALTA [Suspect]
     Active Substance: DULOXETINE HYDROCHLORIDE
     Indication: DEPRESSION
     Dosage: 30 MG, DAILY (1/D)
     Dates: end: 20100918
  2. CYMBALTA [Suspect]
     Active Substance: DULOXETINE HYDROCHLORIDE
     Dosage: UNK, UNKNOWN
     Dates: start: 20100922, end: 20100922

REACTIONS (15)
  - Pain [Recovering/Resolving]
  - Feeling abnormal [Recovering/Resolving]
  - Drug withdrawal syndrome [Recovering/Resolving]
  - Influenza [Recovering/Resolving]
  - Bradyphrenia [Recovering/Resolving]
  - Intentional product misuse [Unknown]
  - Lethargy [Recovering/Resolving]
  - Asthenia [Recovering/Resolving]
  - Hyperacusis [Recovering/Resolving]
  - Tinnitus [Recovering/Resolving]
  - Balance disorder [Recovering/Resolving]
  - Vertigo [Recovering/Resolving]
  - Feeling hot [Recovering/Resolving]
  - Photosensitivity reaction [Recovering/Resolving]
  - Dysphoria [Recovering/Resolving]

NARRATIVE: CASE EVENT DATE: 20100922
